FAERS Safety Report 5777015-4 (Version None)
Quarter: 2008Q2

REPORT INFORMATION
  Report Type: 
  Country: None (occurrence: None)
  Receive Date: 20080618
  Receipt Date: 20080506
  Transmission Date: 20081010
  Serious: No
  Sender: FDA-Public Use
  Company Number: US-ASTRAZENECA-2008UW09310

PATIENT
  Age: 75 Year
  Sex: Female

DRUGS (2)
  1. SYMBICORT [Suspect]
     Indication: CHRONIC OBSTRUCTIVE PULMONARY DISEASE
     Dosage: 160.4.5 UG - 2 PUFFS AM AND 2 PUFFS IN PM
     Route: 055
     Dates: start: 20080401
  2. CHANTIX [Concomitant]
     Dates: start: 20080401

REACTIONS (2)
  - DYSPNOEA [None]
  - OEDEMA PERIPHERAL [None]
